FAERS Safety Report 24872172 (Version 2)
Quarter: 2025Q3

REPORT INFORMATION
  Report Type: Spontaneous
  Country: US (occurrence: US)
  Receive Date: 20250122
  Receipt Date: 20250717
  Transmission Date: 20251020
  Serious: No
  Sender: BRISTOL-MYERS SQUIBB COMPANY
  Company Number: US-BRISTOL-MYERS SQUIBB COMPANY-2025-009284

PATIENT

DRUGS (4)
  1. ELIQUIS [Suspect]
     Active Substance: APIXABAN
     Indication: Atrial fibrillation
     Dates: start: 2024
  2. ELIQUIS [Suspect]
     Active Substance: APIXABAN
     Indication: Cerebrovascular accident prophylaxis
  3. ELIQUIS [Suspect]
     Active Substance: APIXABAN
     Indication: Myocardial infarction
  4. ELIQUIS [Suspect]
     Active Substance: APIXABAN
     Indication: Aortic aneurysm

REACTIONS (1)
  - Inability to afford medication [Unknown]
